FAERS Safety Report 5340022-X (Version None)
Quarter: 2007Q2

REPORT INFORMATION
  Report Type: 
  Country: None (occurrence: None)
  Receive Date: 20070405
  Receipt Date: 20061101
  Transmission Date: 20071010
  Serious: No
  Sender: FDA-Public Use
  Company Number: US200611000571

PATIENT
  Sex: Male

DRUGS (2)
  1. CYMBALTA [Suspect]
     Dosage: 30 MG, ORAL
     Route: 048
  2. ZYPREXA [Suspect]

REACTIONS (2)
  - HYPERSOMNIA [None]
  - PSYCHOMOTOR HYPERACTIVITY [None]
